FAERS Safety Report 20723643 (Version 1)
Quarter: 2022Q2

REPORT INFORMATION
  Report Type: Spontaneous
  Country: US (occurrence: None)
  Receive Date: 20220419
  Receipt Date: 20220419
  Transmission Date: 20220721
  Serious: No
  Sender: FDA-Public Use
  Company Number: US-Merck Healthcare KGaA-9312885

PATIENT
  Sex: Male

DRUGS (3)
  1. SEROSTIM [Suspect]
     Active Substance: SOMATROPIN
     Indication: HIV infection
     Dosage: SEROSTIM
     Route: 058
     Dates: start: 202108
  2. SEROSTIM [Suspect]
     Active Substance: SOMATROPIN
     Indication: Muscular weakness
  3. SEROSTIM [Suspect]
     Active Substance: SOMATROPIN
     Indication: Muscle atrophy

REACTIONS (1)
  - Toothache [Unknown]
